FAERS Safety Report 7292107-9 (Version None)
Quarter: 2011Q1

REPORT INFORMATION
  Report Type: 
  Country: None (occurrence: None)
  Receive Date: 20110215
  Receipt Date: 20110207
  Transmission Date: 20110831
  Serious: No
  Sender: FDA-Public Use
  Company Number: US-BIOGENIDEC-2011BI004554

PATIENT
  Sex: Male

DRUGS (1)
  1. TYSABRI [Suspect]
     Indication: MULTIPLE SCLEROSIS
     Route: 042
     Dates: start: 20070119

REACTIONS (6)
  - BLOOD BILIRUBIN INCREASED [None]
  - INFUSION SITE REACTION [None]
  - MUSCULOSKELETAL PAIN [None]
  - SENSATION OF HEAVINESS [None]
  - HYPERSENSITIVITY [None]
  - CHEST DISCOMFORT [None]
